FAERS Safety Report 7844779-5 (Version None)
Quarter: 2011Q4

REPORT INFORMATION
  Report Type: 
  Country: None (occurrence: None)
  Receive Date: 20111025
  Receipt Date: 20110308
  Transmission Date: 20120403
  Serious: Yes (Hospitalization)
  Sender: FDA-Public Use
  Company Number: US-GLAXOSMITHKLINE-A0918127A

PATIENT
  Age: 68 Year
  Sex: Male

DRUGS (1)
  1. ROSIGLITAZONE MALEATE [Suspect]
     Indication: DIABETES MELLITUS
     Dosage: 4MG THREE TIMES PER DAY
     Route: 048
     Dates: start: 20050101, end: 20070101

REACTIONS (4)
  - INJURY [None]
  - VASCULAR GRAFT [None]
  - PAIN [None]
  - CARDIAC FAILURE CHRONIC [None]
